FAERS Safety Report 7077663-8 (Version None)
Quarter: 2010Q4

REPORT INFORMATION
  Report Type: 
  Country: None (occurrence: None)
  Receive Date: 20101101
  Receipt Date: 20101026
  Transmission Date: 20110411
  Serious: Yes (Death, Other)
  Sender: FDA-Public Use
  Company Number: TW-BAYER-201043390GPV

PATIENT
  Age: 76 Year
  Sex: Female

DRUGS (5)
  1. AVELOX [Suspect]
     Indication: PNEUMONIA
     Dosage: TOTAL DAILY DOSE: 400 MG  UNIT DOSE: 400 MG
     Route: 042
     Dates: start: 20100818, end: 20100822
  2. GLIPIZIDE [Concomitant]
  3. ACETAMINOPHEN [Concomitant]
     Indication: PYREXIA
     Dosage: TOTAL DAILY DOSE: 2000 MG  UNIT DOSE: 500 MG
     Route: 048
     Dates: start: 20100818, end: 20100821
  4. SENNOSIDE A+B CALCIUM [Concomitant]
     Indication: CONSTIPATION
     Dosage: TOTAL DAILY DOSE: 24 MG  UNIT DOSE: 12 MG
     Route: 048
     Dates: start: 20100820, end: 20100821
  5. DIGOXIN [Concomitant]

REACTIONS (4)
  - ELECTROCARDIOGRAM QT PROLONGED [None]
  - TORSADE DE POINTES [None]
  - VENTRICULAR FIBRILLATION [None]
  - VENTRICULAR TACHYCARDIA [None]
